FAERS Safety Report 6988419-6 (Version None)
Quarter: 2010Q3

REPORT INFORMATION
  Report Type: 
  Country: None (occurrence: None)
  Receive Date: 20100916
  Receipt Date: 20100905
  Transmission Date: 20110219
  Serious: Yes (Other)
  Sender: FDA-Public Use
  Company Number: US-JNJFOC-20100902609

PATIENT
  Sex: Male
  Weight: 108.86 kg

DRUGS (4)
  1. REMICADE [Suspect]
     Indication: RHEUMATOID ARTHRITIS
     Route: 042
  2. PREDNISONE [Concomitant]
     Indication: ARTHRITIS
  3. HYDROCHLOROTHIAZIDE [Concomitant]
     Indication: HYPERTENSION
  4. ATENOLOL [Concomitant]
     Indication: HYPERTENSION

REACTIONS (6)
  - DIZZINESS [None]
  - FATIGUE [None]
  - HYPERSENSITIVITY [None]
  - NASOPHARYNGITIS [None]
  - SEPSIS [None]
  - WEIGHT INCREASED [None]
